FAERS Safety Report 6563347-9 (Version None)
Quarter: 2010Q1

REPORT INFORMATION
  Report Type: 
  Country: None (occurrence: None)
  Receive Date: 20100130
  Receipt Date: 20091209
  Transmission Date: 20100710
  Serious: No
  Sender: FDA-Public Use
  Company Number: US-ABBOTT-09P-163-0613696-00

PATIENT
  Sex: Male
  Weight: 70.37 kg

DRUGS (28)
  1. HUMIRA [Suspect]
     Indication: BEHCET'S SYNDROME
     Route: 058
     Dates: start: 20090101
  2. METHOTREXATE [Concomitant]
     Indication: BEHCET'S SYNDROME
     Route: 048
  3. PREDNISONE [Concomitant]
     Indication: BEHCET'S SYNDROME
     Route: 048
  4. LAMICTAL [Concomitant]
     Indication: CONVULSION
     Route: 048
  5. KLONOPIN [Concomitant]
     Indication: TINNITUS
     Dosage: PT VERIFIED STRENGTH
     Route: 048
  6. PLAVIX [Concomitant]
     Indication: CEREBRAL ISCHAEMIA
     Route: 048
  7. FOLIC ACID [Concomitant]
     Indication: VITAMIN SUPPLEMENTATION
     Route: 048
  8. NORVASC [Concomitant]
     Indication: HYPERTENSION
     Route: 048
  9. ATENOLOL [Concomitant]
     Indication: HYPERTENSION
     Route: 048
  10. COZAAR [Concomitant]
     Indication: HYPERTENSION
     Route: 048
  11. LANTUS [Concomitant]
     Indication: DIABETES MELLITUS
     Dosage: AM
     Route: 058
  12. NOVOLOG [Concomitant]
     Indication: DIABETES MELLITUS
     Dosage: PER SS TID AC
     Route: 058
  13. SIMVASTATIN [Concomitant]
     Indication: DRUG USE FOR UNKNOWN INDICATION
     Route: 048
  14. NETRO-VITE [Concomitant]
     Indication: VITAMIN SUPPLEMENTATION
     Route: 048
  15. VITAMIN E [Concomitant]
     Indication: VITAMIN SUPPLEMENTATION
     Route: 048
  16. ASMANEX TWISTHALER [Concomitant]
     Indication: ASTHMA
     Dosage: BID
     Route: 055
  17. SINGULAIR [Concomitant]
     Indication: HYPERSENSITIVITY
     Route: 048
  18. 4NASALIDE [Concomitant]
     Indication: HYPERSENSITIVITY
     Route: 045
  19. ALBUTEROL [Concomitant]
     Indication: ASTHMA
     Route: 055
  20. FEXOPHENADINE [Concomitant]
     Indication: HYPERSENSITIVITY
     Dosage: QD
     Route: 048
  21. NEXIUM [Concomitant]
     Indication: GASTROOESOPHAGEAL REFLUX DISEASE
     Dosage: BID
     Route: 048
  22. NEXIUM [Concomitant]
     Indication: OESOPHAGITIS
  23. NEXIUM [Concomitant]
     Indication: OESOPHAGEAL CANDIDIASIS
  24. DERMATOR CREAM [Concomitant]
     Indication: APHTHOUS STOMATITIS
     Route: 061
  25. CLODERM CREAM [Concomitant]
     Indication: FOLLICULITIS
     Route: 061
  26. BENZACLIN [Concomitant]
     Indication: FOLLICULITIS
     Dosage: WASH
     Route: 061
  27. ZOFRAN [Concomitant]
     Indication: NAUSEA
     Route: 048
  28. ZOFRAN [Concomitant]
     Indication: VOMITING

REACTIONS (2)
  - CELLULITIS [None]
  - SINUSITIS [None]
